FAERS Safety Report 9569209 (Version 2)
Quarter: 2014Q1

REPORT INFORMATION
  Report Type: Spontaneous
  Country: US (occurrence: US)
  Receive Date: 20130930
  Receipt Date: 20140312
  Transmission Date: 20141002
  Serious: Yes (Hospitalization, Other)
  Sender: FDA-Public Use
  Company Number: US-AMGEN-USASP2013059306

PATIENT
  Age: 43 Year
  Sex: Female
  Weight: 74.83 kg

DRUGS (10)
  1. ENBREL [Suspect]
     Indication: PSORIATIC ARTHROPATHY
     Dosage: 50 MG, QWK
     Route: 058
     Dates: start: 20130306
  2. METHOTREXATE [Concomitant]
     Dosage: 2.5 MG, UNK
  3. FOLIC ACID [Concomitant]
     Dosage: UNK
  4. PERCOCET                           /00867901/ [Concomitant]
     Dosage: 2.5-325
  5. LEXAPRO                            /01588501/ [Concomitant]
     Dosage: 5 MG, UNK
  6. XANAX [Concomitant]
     Dosage: 1 MG, UNK
  7. B COMPLEX                          /00212701/ [Concomitant]
     Dosage: UNK
  8. POTASSIUM [Concomitant]
     Dosage: 75 MG, UNK
  9. MAGNESIUM [Concomitant]
     Dosage: 400 MG, UNK
  10. BACTRIM [Concomitant]
     Dosage: 400-80 MG

REACTIONS (4)
  - Influenza like illness [Unknown]
  - Sepsis [Unknown]
  - Drug ineffective [Unknown]
  - Injection site bruising [Unknown]
